FAERS Safety Report 5751851-2 (Version None)
Quarter: 2008Q2

REPORT INFORMATION
  Report Type: 
  Country: None (occurrence: None)
  Receive Date: 20080527
  Receipt Date: 20080515
  Transmission Date: 20081010
  Serious: Yes (Other)
  Sender: FDA-Public Use
  Company Number: 08-016A

PATIENT
  Age: 40 Year
  Sex: Female

DRUGS (2)
  1. LORTAB [Suspect]
  2. DIAZEPAM [Concomitant]

REACTIONS (4)
  - DENTAL CARIES [None]
  - DEPENDENCE [None]
  - OVERDOSE [None]
  - TOOTH LOSS [None]
